FAERS Safety Report 7216291-8 (Version None)
Quarter: 2011Q1

REPORT INFORMATION
  Report Type: 
  Country: None (occurrence: None)
  Receive Date: 20110107
  Receipt Date: 20101230
  Transmission Date: 20110831
  Serious: Yes (Other)
  Sender: FDA-Public Use
  Company Number: CHPA2010US19621

PATIENT
  Age: 65 Year
  Sex: Male
  Weight: 158.73 kg

DRUGS (1)
  1. EXCEDRIN (MIGRAINE) [Suspect]
     Indication: MIGRAINE
     Dosage: 4 CAPLETS ONCE OR TWICE A DAY, PRN
     Route: 048

REACTIONS (3)
  - FACIAL BONES FRACTURE [None]
  - SURGERY [None]
  - OVERDOSE [None]
